FAERS Safety Report 6185181-4 (Version None)
Quarter: 2009Q2

REPORT INFORMATION
  Report Type: 
  Country: None (occurrence: None)
  Receive Date: 20090507
  Receipt Date: 20090428
  Transmission Date: 20091009
  Serious: Yes (Death)
  Sender: FDA-Public Use
  Company Number: TOR 2009-028

PATIENT
  Age: 83 Year
  Sex: Female

DRUGS (2)
  1. FARESTON [Suspect]
     Indication: BREAST CANCER
     Dosage: 40 MG , ORAL
     Route: 048
     Dates: start: 20080307, end: 20080313
  2. EUGLUCON [Concomitant]

REACTIONS (2)
  - COMA HEPATIC [None]
  - HEPATIC FAILURE [None]
